FAERS Safety Report 5532437-1 (Version None)
Quarter: 2007Q4

REPORT INFORMATION
  Report Type: 
  Country: None (occurrence: None)
  Receive Date: 20071203
  Receipt Date: 20071122
  Transmission Date: 20080405
  Serious: Yes (Other)
  Sender: FDA-Public Use
  Company Number: ES-PFIZER INC-2007058841

PATIENT
  Sex: Male
  Weight: 53 kg

DRUGS (6)
  1. CHAMPIX [Suspect]
     Indication: SMOKING CESSATION THERAPY
     Dosage: DAILY DOSE:2MG-FREQ:DAY
     Route: 048
     Dates: start: 20070430, end: 20070815
  2. OMEPRAZOLE [Concomitant]
     Route: 048
  3. PLUSVENT [Concomitant]
     Route: 055
  4. SPIRIVA [Concomitant]
     Route: 055
  5. ACETYLCYSTEINE [Concomitant]
     Route: 048
  6. VITAMIN B COMPLEX CAP [Concomitant]
     Route: 048

REACTIONS (1)
  - ROAD TRAFFIC ACCIDENT [None]
